FAERS Safety Report 6370886-2 (Version None)
Quarter: 2009Q3

REPORT INFORMATION
  Report Type: 
  Country: None (occurrence: None)
  Receive Date: 20090923
  Receipt Date: 20070719
  Transmission Date: 20100115
  Serious: Yes (Hospitalization)
  Sender: FDA-Public Use
  Company Number: US-ASTRAZENECA-2006UW22512

PATIENT
  Age: 578 Month
  Sex: Male
  Weight: 82.1 kg

DRUGS (2)
  1. SEROQUEL [Suspect]
     Indication: SLEEP DISORDER
     Dosage: 25-200 MG
     Route: 048
     Dates: start: 20020727
  2. SEROQUEL [Suspect]
     Route: 048
     Dates: start: 20030302

REACTIONS (1)
  - DIABETES MELLITUS [None]
